FAERS Safety Report 6454562-3 (Version None)
Quarter: 2009Q4

REPORT INFORMATION
  Report Type: 
  Country: None (occurrence: None)
  Receive Date: 20091118
  Receipt Date: 20091103
  Transmission Date: 20100525
  Serious: Yes (Death, Hospitalization)
  Sender: FDA-Public Use
  Company Number: 2009003385

PATIENT
  Age: 75 Year
  Sex: Male
  Weight: 73 kg

DRUGS (16)
  1. ERLOTINIB (ERLOTINIB HCL) (TABLET) (ERLOTINIB) [Suspect]
     Indication: NON-SMALL CELL LUNG CANCER
     Dosage: (150 MG,QD), ORAL
     Route: 048
     Dates: start: 20090216, end: 20090312
  2. SIMVASTATIN [Concomitant]
  3. SYMBICORT (SYMBICORT) [Concomitant]
  4. SALBUTAMOL ( SALBUTAMOL) [Concomitant]
  5. OXYGEN (OXYGEN) [Concomitant]
  6. ACETYLCYSTEINE [Concomitant]
  7. NPH INSULIN [Concomitant]
  8. THEOLAIR-SR [Concomitant]
  9. CASODEX [Concomitant]
  10. ALLOPURINOL [Concomitant]
  11. OMEPRAZOLE [Concomitant]
  12. SPIRIVA [Concomitant]
  13. AUGMENTIN '125' [Concomitant]
  14. ACTRAPID [Concomitant]
  15. FUROSEMIDE [Concomitant]
  16. CODEISAN (CODIENE PHOSPHATE) [Concomitant]

REACTIONS (8)
  - CARDIAC FAILURE CONGESTIVE [None]
  - CHRONIC OBSTRUCTIVE PULMONARY DISEASE [None]
  - CONDITION AGGRAVATED [None]
  - MALIGNANT NEOPLASM PROGRESSION [None]
  - METASTASIS [None]
  - NON-SMALL CELL LUNG CANCER [None]
  - PAIN [None]
  - RESPIRATORY TRACT INFECTION [None]
